FAERS Safety Report 7553825-8 (Version None)
Quarter: 2011Q2

REPORT INFORMATION
  Report Type: 
  Country: None (occurrence: None)
  Receive Date: 20110609
  Receipt Date: 20110524
  Transmission Date: 20111010
  Serious: Yes (Life-Threatening, Hospitalization, Other)
  Sender: FDA-Public Use
  Company Number: 2011MA006477

PATIENT
  Age: 69 Year
  Sex: Female

DRUGS (1)
  1. METFORMIN HYDROCHLORIDE [Suspect]
     Dosage: 2.5 G

REACTIONS (6)
  - RENAL FAILURE ACUTE [None]
  - LACTIC ACIDOSIS [None]
  - COMA SCALE ABNORMAL [None]
  - HYPOTHERMIA [None]
  - TOXICITY TO VARIOUS AGENTS [None]
  - DIALYSIS [None]
